FAERS Safety Report 7209291-5 (Version None)
Quarter: 2011Q1

REPORT INFORMATION
  Report Type: 
  Country: None (occurrence: None)
  Receive Date: 20110104
  Receipt Date: 20101230
  Transmission Date: 20110831
  Serious: Yes (Other)
  Sender: FDA-Public Use
  Company Number: B0691602A

PATIENT
  Sex: Female

DRUGS (4)
  1. KLIOGEST [Concomitant]
     Dosage: 1UNIT PER DAY
     Route: 048
  2. AUGMENTIN [Suspect]
     Indication: PRODUCT USED FOR UNKNOWN INDICATION
     Route: 048
     Dates: start: 20101213, end: 20101220
  3. ZESTORETIC [Concomitant]
     Route: 048
  4. INTRAVENOUS CONTRAST [Suspect]
     Indication: NUCLEAR MAGNETIC RESONANCE IMAGING
     Route: 042
     Dates: start: 20101219, end: 20101219

REACTIONS (3)
  - PRURITUS [None]
  - ERYTHEMA [None]
  - HYPERSENSITIVITY [None]
